FAERS Safety Report 5905435-3 (Version None)
Quarter: 2008Q4

REPORT INFORMATION
  Report Type: 
  Country: None (occurrence: None)
  Receive Date: 20081001
  Receipt Date: 20081001
  Transmission Date: 20090506
  Serious: No
  Sender: FDA-Public Use
  Company Number: None

PATIENT
  Sex: Female
  Weight: 99.3377 kg

DRUGS (5)
  1. ZOLOFT [Suspect]
     Indication: DEPRESSION
     Dosage: 50MG QD PO
     Route: 048
     Dates: start: 20080820, end: 20080824
  2. PREVACID [Concomitant]
  3. LIBRIUM [Concomitant]
  4. LEVOTHYROXINE SODIUM [Concomitant]
  5. ACYCLOVIR SODIUM [Concomitant]

REACTIONS (5)
  - DIARRHOEA [None]
  - HEADACHE [None]
  - HYPERHIDROSIS [None]
  - NAUSEA [None]
  - PRODUCT QUALITY ISSUE [None]
